FAERS Safety Report 8125730-X (Version None)
Quarter: 2012Q1

REPORT INFORMATION
  Report Type: 
  Country: None (occurrence: None)
  Receive Date: 20120209
  Receipt Date: 20120131
  Transmission Date: 20120608
  Serious: Yes (Life-Threatening)
  Sender: FDA-Public Use
  Company Number: CHPA2012US002632

PATIENT
  Sex: Male

DRUGS (1)
  1. ACETAM/DIPHEN CITRATE [Suspect]
     Dosage: 1 DF, UNK
     Route: 048

REACTIONS (9)
  - ACTIVITIES OF DAILY LIVING IMPAIRED [None]
  - FEELING ABNORMAL [None]
  - VISUAL IMPAIRMENT [None]
  - DIZZINESS [None]
  - LETHARGY [None]
  - BALANCE DISORDER [None]
  - UNDERDOSE [None]
  - HEADACHE [None]
  - ABDOMINAL DISCOMFORT [None]
